FAERS Safety Report 8540438-4 (Version None)
Quarter: 2012Q3

REPORT INFORMATION
  Report Type: 
  Country: None (occurrence: None)
  Receive Date: 20120726
  Receipt Date: 20110706
  Transmission Date: 20120928
  Serious: No
  Sender: FDA-Public Use
  Company Number: US-ASTRAZENECA-2011SE40582

PATIENT
  Sex: Male

DRUGS (5)
  1. SEROQUEL [Suspect]
     Route: 048
  2. SEROQUEL [Suspect]
     Route: 048
  3. DEPAKOTE [Concomitant]
  4. KLONOPIN [Concomitant]
  5. KLONOPIN [Concomitant]

REACTIONS (4)
  - DRUG DEPENDENCE [None]
  - HYPOMANIA [None]
  - BIPOLAR I DISORDER [None]
  - HYPERTHYROIDISM [None]
